FAERS Safety Report 12876358 (Version 1)
Quarter: 2016Q4

REPORT INFORMATION
  Report Type: Spontaneous
  Country: US (occurrence: US)
  Receive Date: 20161021
  Receipt Date: 20161021
  Transmission Date: 20170207
  Serious: Yes (Hospitalization)
  Sender: FDA-Public Use
  Company Number: None

PATIENT
  Age: 60 Year
  Sex: Female
  Weight: 165.1 kg

DRUGS (3)
  1. 5-FLUOURACIL (5-FU) [Suspect]
     Active Substance: FLUOROURACIL
     Dates: end: 20160803
  2. LEUCOVORIN CALCIUM. [Concomitant]
     Active Substance: LEUCOVORIN CALCIUM
     Dates: end: 20160803
  3. ELOXATIN [Suspect]
     Active Substance: OXALIPLATIN
     Dates: end: 20160803

REACTIONS (2)
  - Chest pain [None]
  - Complication associated with device [None]

NARRATIVE: CASE EVENT DATE: 20160914
